FAERS Safety Report 14933604 (Version 2)
Quarter: 2018Q2

REPORT INFORMATION
  Report Type: Report from Study
  Country: FR (occurrence: FR)
  Receive Date: 20180524
  Receipt Date: 20180530
  Transmission Date: 20180711
  Serious: Yes (Hospitalization)
  Sender: FDA-Public Use
  Company Number: FR-ROCHE-2127327

PATIENT
  Age: 59 Year
  Sex: Female

DRUGS (8)
  1. BLINDED ATEZOLIZUMAB [Suspect]
     Active Substance: ATEZOLIZUMAB
     Indication: OVARIAN CANCER
     Dosage: 6 CYCLES EVERY 4 WEEK?ON 02/MAR/2017, PATIENT RECEIVED LAST DOSE OF ATEZOLIZUMAB BEFORE THE EVENT.
     Route: 042
     Dates: start: 20161223, end: 20170316
  2. BEVACIZUMAB. [Suspect]
     Active Substance: BEVACIZUMAB
     Route: 042
     Dates: start: 20170406
  3. BLINDED ATEZOLIZUMAB [Suspect]
     Active Substance: ATEZOLIZUMAB
     Route: 042
     Dates: start: 20170420
  4. PEGYLATED LIPOSOMAL DOXORUBICIN [Suspect]
     Active Substance: DOXORUBICIN
     Route: 042
     Dates: start: 20170406
  5. CARBOPLATIN. [Suspect]
     Active Substance: CARBOPLATIN
     Route: 042
     Dates: start: 20170406
  6. BEVACIZUMAB. [Suspect]
     Active Substance: BEVACIZUMAB
     Indication: OVARIAN CANCER
     Dosage: 6 CYCLES EVERY 4 WEEK?ON 02/MAR/2017, PATIENT RECEIVED LAST DOSE OF BEVACIZUMAB BEFORE THE EVENT.
     Route: 042
     Dates: start: 20161223, end: 20170316
  7. CARBOPLATIN. [Suspect]
     Active Substance: CARBOPLATIN
     Indication: OVARIAN CANCER
     Dosage: 5 AUC?ON 16/FEB/2017, PATIENT RECEIVED LAST DOSE OF CARBOPLATIN BEFORE THE EVENT.
     Route: 042
     Dates: start: 20161223, end: 20170330
  8. PEGYLATED LIPOSOMAL DOXORUBICIN [Suspect]
     Active Substance: DOXORUBICIN
     Indication: OVARIAN CANCER
     Dosage: ON 16/FEB/2017, PATIENT RECEIVED LAST DOSE OF PEGYLATED LIPOSOMAL DOXORUBICIN BEFORE THE EVENT.
     Route: 042
     Dates: start: 20161223, end: 20170330

REACTIONS (1)
  - Meningism [Unknown]

NARRATIVE: CASE EVENT DATE: 20170310
